FAERS Safety Report 5628926-1 (Version None)
Quarter: 2008Q1

REPORT INFORMATION
  Report Type: 
  Country: None (occurrence: None)
  Receive Date: 20080214
  Receipt Date: 20080207
  Transmission Date: 20080703
  Serious: Yes (Hospitalization)
  Sender: FDA-Public Use
  Company Number: 2008SP000997

PATIENT
  Age: 44 Year
  Sex: Male
  Weight: 84 kg

DRUGS (10)
  1. TEMODAR [Suspect]
     Indication: ASTROCYTOMA, LOW GRADE
     Dosage: 75 MG/M2;QD;
     Dates: start: 20071022, end: 20071203
  2. TEMODAR [Suspect]
     Indication: ASTROCYTOMA, LOW GRADE
     Dosage: 75 MG/M2;QD;
     Dates: start: 20080104
  3. BACTRIM [Suspect]
     Indication: URINARY TRACT INFECTION
  4. WELLBUTRIN SR (CON.) [Concomitant]
  5. ZOFRAN (CON.) [Concomitant]
  6. BACTRIM (CON.) [Concomitant]
  7. VICODIN (CON.) [Concomitant]
  8. KEPPRA (CON.) [Concomitant]
  9. PEPCID (CON.) [Concomitant]
  10. COUMADIN (CON.) [Concomitant]

REACTIONS (5)
  - FALL [None]
  - HEPATIC ENZYME INCREASED [None]
  - HEPATIC STEATOSIS [None]
  - POLYARTHRITIS [None]
  - URINARY TRACT INFECTION [None]
